FAERS Safety Report 15553824 (Version 3)
Quarter: 2019Q1

REPORT INFORMATION
  Report Type: Spontaneous
  Country: US (occurrence: US)
  Receive Date: 20181026
  Receipt Date: 20190325
  Transmission Date: 20190417
  Serious: Yes (Other)
  Sender: FDA-Public Use
  Company Number: US-SA-2018SA125048

PATIENT
  Age: 62 Year
  Sex: Male

DRUGS (1)
  1. DUPIXENT [Suspect]
     Active Substance: DUPILUMAB
     Indication: DERMATITIS ATOPIC
     Dosage: 300 MG/2ML, QOW
     Route: 058
     Dates: start: 20180226

REACTIONS (9)
  - Therapeutic response decreased [Unknown]
  - Product dose omission [Unknown]
  - Prostatic operation [Unknown]
  - Eye pruritus [Unknown]
  - Pain [Unknown]
  - Injection site pain [Unknown]
  - Injection site swelling [Recovering/Resolving]
  - Stress [Unknown]
  - Dry eye [Unknown]

NARRATIVE: CASE EVENT DATE: 201804
